FAERS Safety Report 6417330-4 (Version None)
Quarter: 2009Q4

REPORT INFORMATION
  Report Type: 
  Country: None (occurrence: None)
  Receive Date: 20091028
  Receipt Date: 20091022
  Transmission Date: 20100525
  Serious: Yes (Death)
  Sender: FDA-Public Use
  Company Number: PHEH2009US14455

PATIENT
  Sex: Female

DRUGS (10)
  1. GLEEVEC [Suspect]
     Indication: SYSTEMIC SCLEROSIS
     Dosage: 200 MG, QD
     Route: 048
     Dates: start: 20090424, end: 20091001
  2. TORSEMIDE [Concomitant]
  3. SPIRONOLACTONE [Concomitant]
  4. DIGOXIN [Concomitant]
  5. LISINOPRIL [Concomitant]
  6. LYRICA [Concomitant]
  7. PHENYTOIN [Concomitant]
  8. KEPPRA [Concomitant]
  9. LETAIRIS [Concomitant]
  10. REVATIO [Concomitant]

REACTIONS (1)
  - DEATH [None]
